FAERS Safety Report 21259889 (Version 1)
Quarter: 2022Q3

REPORT INFORMATION
  Report Type: Spontaneous
  Country: US (occurrence: None)
  Receive Date: 20220825
  Receipt Date: 20220825
  Transmission Date: 20221026
  Serious: Yes (Hospitalization)
  Sender: FDA-Public Use
  Company Number: None

PATIENT
  Age: 47 Year
  Sex: Female

DRUGS (1)
  1. CINACALCET HYDROCHLORIDE [Suspect]
     Active Substance: CINACALCET HYDROCHLORIDE
     Indication: Hypercalcaemia
     Dosage: 30MG TWICE DAILY ORAL?
     Route: 048
     Dates: start: 20220324

REACTIONS (4)
  - Breast cancer [None]
  - Fatigue [None]
  - Pollakiuria [None]
  - Therapy interrupted [None]

NARRATIVE: CASE EVENT DATE: 20220722
